FAERS Safety Report 6921298-1 (Version None)
Quarter: 2010Q3

REPORT INFORMATION
  Report Type: 
  Country: None (occurrence: None)
  Receive Date: 20100812
  Receipt Date: 20100805
  Transmission Date: 20110219
  Serious: Yes (Life-Threatening)
  Sender: FDA-Public Use
  Company Number: B0668625A

PATIENT
  Sex: Male

DRUGS (3)
  1. DEROXAT [Suspect]
     Indication: BIPOLAR DISORDER
     Dosage: 25MG PER DAY
     Dates: end: 20100614
  2. ANAFRANIL [Suspect]
     Indication: BIPOLAR DISORDER
     Dosage: 125MG PER DAY
     Dates: end: 20100614
  3. LARGACTIL [Suspect]
     Indication: BIPOLAR DISORDER
     Dosage: 75MG PER DAY
     Dates: end: 20100614

REACTIONS (11)
  - DRUG EXPOSURE DURING PREGNANCY [None]
  - DYSKINESIA [None]
  - FOETAL ARRHYTHMIA [None]
  - HYPOTONIA NEONATAL [None]
  - MUSCLE RIGIDITY [None]
  - NEONATAL RESPIRATORY DISTRESS SYNDROME [None]
  - OPISTHOTONUS [None]
  - REGURGITATION [None]
  - RESPIRATION ABNORMAL [None]
  - SOMNOLENCE NEONATAL [None]
  - VOMITING [None]
